FAERS Safety Report 7656893-8 (Version None)
Quarter: 2011Q3

REPORT INFORMATION
  Report Type: 
  Country: None (occurrence: None)
  Receive Date: 20110802
  Receipt Date: 20110718
  Transmission Date: 20111222
  Serious: Yes (Death)
  Sender: FDA-Public Use
  Company Number: 1000022528

PATIENT

DRUGS (3)
  1. DEANXIT (FLUPENTIXOL, MELITRACEN) [Concomitant]
  2. CITALOPRAM HYDROBROMIDE [Suspect]
     Indication: ANXIETY DISORDER
     Dosage: ORAL
     Route: 048
     Dates: start: 20101001, end: 20101101
  3. CITALOPRAM HYDROBROMIDE [Suspect]
     Indication: INSOMNIA
     Dosage: ORAL
     Route: 048
     Dates: start: 20101001, end: 20101101

REACTIONS (1)
  - COMPLETED SUICIDE [None]
